FAERS Safety Report 8615848-7 (Version None)
Quarter: 2012Q3

REPORT INFORMATION
  Report Type: 
  Country: None (occurrence: None)
  Receive Date: 20120823
  Receipt Date: 20120810
  Transmission Date: 20120928
  Serious: Yes (Hospitalization, Other)
  Sender: FDA-Public Use
  Company Number: JP-ROCHE-1102940

PATIENT
  Age: 78 Year
  Sex: Male

DRUGS (3)
  1. LUCENTIS [Suspect]
     Indication: AGE-RELATED MACULAR DEGENERATION
     Route: 050
     Dates: start: 20120712, end: 20120712
  2. LEVOFLOXACIN [Suspect]
     Indication: PRODUCT USED FOR UNKNOWN INDICATION
     Route: 047
     Dates: start: 20120709, end: 20120718
  3. ISODINE [Concomitant]
     Dates: start: 20120712, end: 20120712

REACTIONS (2)
  - ENDOPHTHALMITIS [None]
  - INJECTION RELATED REACTION [None]
